FAERS Safety Report 21198075 (Version 1)
Quarter: 2022Q3

REPORT INFORMATION
  Report Type: Report from Study
  Country: DE (occurrence: DE)
  Receive Date: 20220810
  Receipt Date: 20220810
  Transmission Date: 20221027
  Serious: Yes (Hospitalization)
  Sender: FDA-Public Use
  Company Number: DE-JNJFOC-20210859764

PATIENT
  Sex: Female

DRUGS (11)
  1. SIMPONI [Suspect]
     Active Substance: GOLIMUMAB
     Indication: Rheumatoid arthritis
     Route: 058
     Dates: start: 201908
  2. METHOTREXATE [Suspect]
     Active Substance: METHOTREXATE
     Indication: Product used for unknown indication
     Route: 065
     Dates: start: 20170824
  3. CIMZIA [Concomitant]
     Active Substance: CERTOLIZUMAB PEGOL
     Indication: Rheumatoid arthritis
     Dates: start: 201708, end: 201908
  4. FUROSEMIDE [Concomitant]
     Active Substance: FUROSEMIDE
  5. PREDNISOLONE [Concomitant]
     Active Substance: PREDNISOLONE
  6. PANTOPRAZOLE SODIUM [Concomitant]
     Active Substance: PANTOPRAZOLE SODIUM
  7. CHOLECALCIFEROL [Concomitant]
     Active Substance: CHOLECALCIFEROL
  8. CALCIUM [Concomitant]
     Active Substance: CALCIUM
  9. BISOPROLOL [Concomitant]
     Active Substance: BISOPROLOL
  10. FOLIC ACID [Concomitant]
     Active Substance: FOLIC ACID
  11. CETIRIZINE [Concomitant]
     Active Substance: CETIRIZINE HYDROCHLORIDE

REACTIONS (6)
  - Pneumonia [Unknown]
  - Pelvic venous thrombosis [Recovered/Resolved]
  - Pulmonary embolism [Recovered/Resolved]
  - Pelvic venous thrombosis [Recovered/Resolved]
  - Thrombophlebitis [Unknown]
  - Urticaria [Unknown]

NARRATIVE: CASE EVENT DATE: 20210301
